FAERS Safety Report 10998828 (Version 4)
Quarter: 2015Q2

REPORT INFORMATION
  Report Type: Report from Study
  Country: DE (occurrence: DE)
  Receive Date: 20150408
  Receipt Date: 20150505
  Transmission Date: 20150821
  Serious: Yes (Hospitalization, Other)
  Sender: FDA-Public Use
  Company Number: DE-ABBVIE-15P-062-1372489-00

PATIENT
  Age: 53 Year
  Sex: Female

DRUGS (1)
  1. DUODOPA [Suspect]
     Active Substance: CARBIDOPA\LEVODOPA
     Indication: PARKINSON^S DISEASE
     Dosage: MORNING DOSE: 4.5ML?CONTINUOUS DAILY RATE: 3.2ML/H?MAINTENANCE DOSE: 2.1ML
     Route: 050
     Dates: start: 20101025

REACTIONS (3)
  - Aphasia [Not Recovered/Not Resolved]
  - Brain neoplasm benign [Not Recovered/Not Resolved]
  - Meningioma [Unknown]

NARRATIVE: CASE EVENT DATE: 2015
